FAERS Safety Report 8895320 (Version 3)
Quarter: 2015Q3

REPORT INFORMATION
  Report Type: Spontaneous
  Country: CA (occurrence: CA)
  Receive Date: 20121108
  Receipt Date: 20150723
  Transmission Date: 20151125
  Serious: Yes (Other)
  Sender: FDA-Public Use
  Company Number: CA-PFIZER INC-2012277577

PATIENT
  Age: 44 Year
  Sex: Male
  Weight: 127.89 kg

DRUGS (6)
  1. LYRICA [Suspect]
     Active Substance: PREGABALIN
     Indication: PELVIC PAIN
     Dosage: 300 MG, 2X/DAY
     Route: 048
     Dates: start: 20120104
  2. SERC [Concomitant]
     Active Substance: BETAHISTINE HYDROCHLORIDE
     Dosage: 24 MG, 3X/DAY
     Dates: start: 20100621
  3. NASONEX [Concomitant]
     Active Substance: MOMETASONE FUROATE
     Dosage: UNK
     Dates: start: 20100402
  4. OXYNEO [Concomitant]
     Active Substance: OXYCODONE
     Dosage: 30 MG, 2X/DAY
     Dates: start: 20120531
  5. OXYNEO [Concomitant]
     Active Substance: OXYCODONE
     Dosage: 60 MG, 3X/DAY
     Dates: start: 20120327
  6. LYRICA [Suspect]
     Active Substance: PREGABALIN
     Indication: MUSCLE SPASMS
     Dosage: 150 MG, 2X/DAY
     Route: 048
     Dates: end: 20121207

REACTIONS (2)
  - Product use issue [Unknown]
  - Seizure [Recovered/Resolved]

NARRATIVE: CASE EVENT DATE: 20120104
